FAERS Safety Report 17009494 (Version 2)
Quarter: 2019Q4

REPORT INFORMATION
  Report Type: Spontaneous
  Country: JP (occurrence: JP)
  Receive Date: 20191108
  Receipt Date: 20191121
  Transmission Date: 20200122
  Serious: Yes (Other)
  Sender: FDA-Public Use
  Company Number: JP-JNJFOC-20191100230

PATIENT
  Age: 21 Year
  Sex: Female

DRUGS (3)
  1. RISPERDAL [Suspect]
     Active Substance: RISPERIDONE
     Indication: AUTISM SPECTRUM DISORDER
     Dosage: 1-2MG
     Route: 048
  2. PROPERICIAZINE [Suspect]
     Active Substance: PERICIAZINE
     Indication: AUTISM SPECTRUM DISORDER
     Route: 048
  3. INVEGA [Suspect]
     Active Substance: PALIPERIDONE
     Indication: AUTISM SPECTRUM DISORDER
     Dosage: UNKNOWN
     Route: 048

REACTIONS (4)
  - Product use in unapproved indication [Unknown]
  - Intentional self-injury [Unknown]
  - Anger [Unknown]
  - Off label use [Unknown]
